APPROVED DRUG PRODUCT: DEXMEDETOMIDINE HYDROCHLORIDE
Active Ingredient: DEXMEDETOMIDINE HYDROCHLORIDE
Strength: EQ 200MCG BASE/50ML (EQ 4MCG BASE/ML)
Dosage Form/Route: INJECTABLE;INJECTION
Application: A208532 | Product #001 | TE Code: AP
Applicant: BAXTER HEALTHCARE CORP
Approved: Aug 21, 2018 | RLD: No | RS: No | Type: RX